FAERS Safety Report 6639211-3 (Version None)
Quarter: 2010Q1

REPORT INFORMATION
  Report Type: 
  Country: None (occurrence: None)
  Receive Date: 20100312
  Receipt Date: 20100304
  Transmission Date: 20100710
  Serious: Yes (Death)
  Sender: FDA-Public Use
  Company Number: 2009SP043221

PATIENT
  Age: 73 Year
  Sex: Female

DRUGS (6)
  1. MIRTAZAPINE [Suspect]
     Indication: DEPRESSION
     Dosage: 7.5 MG; QD; PO
     Route: 048
     Dates: start: 20091214, end: 20091216
  2. FLUVOXAMINE MALEATE [Suspect]
     Indication: DEPRESSION
     Dosage: 100 MG; QD; PO
     Route: 048
     Dates: start: 20090928, end: 20091216
  3. AKINETON [Suspect]
     Indication: ADVERSE DRUG REACTION
     Dosage: 2 MG;QD;PO
     Route: 048
     Dates: start: 20080801, end: 20091216
  4. SILECE (FLUNITRAZEPAM) [Suspect]
     Indication: INSOMNIA
     Dosage: 2 MG;QD;PO
     Route: 048
     Dates: start: 20080801, end: 20091216
  5. PROMETHAZINE HCL [Suspect]
     Indication: ADVERSE DRUG REACTION
     Dosage: 10 MG;QD;PO
     Route: 048
     Dates: start: 20090810, end: 20091216
  6. AMOBAN (ZOPICLONE) [Suspect]
     Indication: INSOMNIA
     Dosage: 7.5 MG;QD;PO
     Route: 048
     Dates: start: 20080101, end: 20091216

REACTIONS (11)
  - APATHY [None]
  - ASPHYXIA [None]
  - COMPLETED SUICIDE [None]
  - CONDITION AGGRAVATED [None]
  - DEATH OF RELATIVE [None]
  - DEPRESSION [None]
  - GLAUCOMA [None]
  - INTENTIONAL SELF-INJURY [None]
  - LAZINESS [None]
  - PAIN [None]
  - VISUAL FIELD DEFECT [None]
